FAERS Safety Report 6926032-7 (Version None)
Quarter: 2010Q3

REPORT INFORMATION
  Report Type: 
  Country: None (occurrence: None)
  Receive Date: 20100816
  Receipt Date: 20100728
  Transmission Date: 20110219
  Serious: Yes (Hospitalization)
  Sender: FDA-Public Use
  Company Number: US-BAYER-201025588NA

PATIENT
  Age: 21 Year
  Sex: Female
  Weight: 50 kg

DRUGS (4)
  1. YAZ [Suspect]
     Indication: ACNE
     Route: 048
     Dates: start: 20081001, end: 20090701
  2. YASMIN [Suspect]
     Indication: PRODUCT USED FOR UNKNOWN INDICATION
     Route: 048
     Dates: start: 20081001, end: 20090701
  3. ADVIL LIQUI-GELS [Concomitant]
  4. ALEVE (CAPLET) [Concomitant]

REACTIONS (4)
  - DYSPNOEA [None]
  - PLEURITIC PAIN [None]
  - PULMONARY EMBOLISM [None]
  - THROMBOSIS [None]
